FAERS Safety Report 20022716 (Version 1)
Quarter: 2021Q4

REPORT INFORMATION
  Report Type: Other
  Country: IR (occurrence: None)
  Receive Date: 20211102
  Receipt Date: 20211102
  Transmission Date: 20220304
  Serious: Yes (Other)
  Sender: FDA-Public Use
  Company Number: IR-Umedica-000144

PATIENT
  Age: 20 Year
  Sex: Female

DRUGS (3)
  1. ROSUVASTATIN [Suspect]
     Active Substance: ROSUVASTATIN
     Indication: Type IIa hyperlipidaemia
     Dosage: 60 MG/D
  2. EZETIMIBE [Suspect]
     Active Substance: EZETIMIBE
     Indication: Type IIa hyperlipidaemia
     Dosage: 10 MG/D
  3. CHOLESTYRAMINE [Concomitant]
     Active Substance: CHOLESTYRAMINE
     Indication: Hypercholesterolaemia

REACTIONS (5)
  - Supravalvular aortic stenosis [Unknown]
  - Drug ineffective [Unknown]
  - Coronary artery stenosis [Unknown]
  - Aortic valve stenosis [Unknown]
  - Alanine aminotransferase increased [Unknown]
